FAERS Safety Report 6361505-X (Version None)
Quarter: 2009Q3

REPORT INFORMATION
  Report Type: 
  Country: None (occurrence: None)
  Receive Date: 20090918
  Receipt Date: 20090914
  Transmission Date: 20100115
  Serious: Yes (Other)
  Sender: FDA-Public Use
  Company Number: JP-BAYER-200913390BYL

PATIENT
  Age: 76 Year
  Sex: Male
  Weight: 54 kg

DRUGS (7)
  1. NEXAVAR [Suspect]
     Indication: RENAL CELL CARCINOMA STAGE IV
     Dosage: TOTAL DAILY DOSE: 800 MG  UNIT DOSE: 200 MG
     Route: 048
     Dates: start: 20090709, end: 20090724
  2. TAKEPRON [Concomitant]
     Indication: OESOPHAGITIS
     Route: 048
     Dates: start: 20080801
  3. URSO 250 [Concomitant]
     Indication: HEPATITIS
     Route: 048
     Dates: start: 20080801
  4. PANCREATIN [Concomitant]
     Indication: GASTRIC OPERATION
     Route: 048
     Dates: start: 20080801
  5. EXCELASE [Concomitant]
     Indication: GASTRIC OPERATION
     Route: 048
     Dates: start: 20080801
  6. RIKKUNSHI-TO [Concomitant]
     Indication: GASTRIC OPERATION
     Route: 048
     Dates: start: 20080801
  7. GLUFAST [Concomitant]
     Indication: DIABETES MELLITUS
     Route: 048
     Dates: start: 20090724

REACTIONS (3)
  - DYSGEUSIA [None]
  - HYPOPHOSPHATAEMIA [None]
  - PALMAR-PLANTAR ERYTHRODYSAESTHESIA SYNDROME [None]
